FAERS Safety Report 25084318 (Version 1)
Quarter: 2025Q1

REPORT INFORMATION
  Report Type: Spontaneous
  Country: GB (occurrence: GB)
  Receive Date: 20250317
  Receipt Date: 20250317
  Transmission Date: 20250409
  Serious: Yes (Other)
  Sender: TORRENT PHARMA INC.
  Company Number: None

PATIENT
  Age: 89 Year
  Sex: Female

DRUGS (4)
  1. DONEPEZIL [Suspect]
     Active Substance: DONEPEZIL
     Indication: Adverse drug reaction
     Dosage: 10 MG X 1
     Route: 065
     Dates: end: 202412
  2. ATENOLOL [Concomitant]
     Active Substance: ATENOLOL
     Indication: Product used for unknown indication
     Route: 065
  3. CLOPIDOGREL [Concomitant]
     Active Substance: CLOPIDOGREL BISULFATE
     Indication: Product used for unknown indication
     Route: 065
  4. SIMVASTATIN [Concomitant]
     Active Substance: SIMVASTATIN
     Indication: Product used for unknown indication
     Route: 065

REACTIONS (2)
  - Anal incontinence [Recovering/Resolving]
  - Therapy cessation [Unknown]
